FAERS Safety Report 17525885 (Version 1)
Quarter: 2020Q1

REPORT INFORMATION
  Report Type: Spontaneous
  Country: US (occurrence: US)
  Receive Date: 20200303
  Receipt Date: 20200303
  Transmission Date: 20200409
  Serious: Yes (Death)
  Sender: FDA-Public Use
  Company Number: None

PATIENT
  Age: 73 Year
  Sex: Male

DRUGS (5)
  1. FULPHILA [Suspect]
     Active Substance: PEGFILGRASTIM-JMDB
     Dosage: ?          OTHER FREQUENCY:Q14DAYS;?
     Route: 058
     Dates: start: 20190910, end: 20200228
  2. OXALIPATIN [Concomitant]
     Active Substance: OXALIPLATIN
  3. IRINOTECAN [Concomitant]
     Active Substance: IRINOTECAN
  4. LEUCOVORIN 200MG [Suspect]
     Active Substance: LEUCOVORIN
     Dosage: ?          OTHER FREQUENCY:Q14DAYS;?
     Route: 042
     Dates: start: 20200103, end: 20200228
  5. FLUROUACIL [Concomitant]

REACTIONS (1)
  - Death [None]

NARRATIVE: CASE EVENT DATE: 20200228
